FAERS Safety Report 17439605 (Version 2)
Quarter: 2020Q1

REPORT INFORMATION
  Report Type: Spontaneous
  Country: US (occurrence: US)
  Receive Date: 20200220
  Receipt Date: 20200313
  Transmission Date: 20200409
  Serious: No
  Sender: FDA-Public Use
  Company Number: US-BIOGEN-2020BI00839758

PATIENT
  Age: 31 Year
  Sex: Female

DRUGS (4)
  1. TECFIDERA [Suspect]
     Active Substance: DIMETHYL FUMARATE
     Route: 065
     Dates: start: 20200208, end: 20200229
  2. TECFIDERA [Suspect]
     Active Substance: DIMETHYL FUMARATE
     Route: 048
  3. TECFIDERA [Suspect]
     Active Substance: DIMETHYL FUMARATE
     Route: 048
     Dates: start: 20200302, end: 20200302
  4. TECFIDERA [Suspect]
     Active Substance: DIMETHYL FUMARATE
     Indication: MULTIPLE SCLEROSIS
     Route: 065
     Dates: start: 20200201, end: 20200207

REACTIONS (14)
  - Feeding disorder [Unknown]
  - Flushing [Not Recovered/Not Resolved]
  - Pruritus [Unknown]
  - Oral neoplasm [Not Recovered/Not Resolved]
  - Influenza like illness [Unknown]
  - Migraine [Unknown]
  - Tremor [Not Recovered/Not Resolved]
  - Temperature intolerance [Not Recovered/Not Resolved]
  - Tremor [Not Recovered/Not Resolved]
  - Vomiting [Unknown]
  - Pyrexia [Not Recovered/Not Resolved]
  - Memory impairment [Unknown]
  - Irritability [Recovered/Resolved]
  - Nausea [Unknown]

NARRATIVE: CASE EVENT DATE: 20200207
